FAERS Safety Report 25895059 (Version 1)
Quarter: 2025Q4

REPORT INFORMATION
  Report Type: Spontaneous
  Country: US (occurrence: US)
  Receive Date: 20251008
  Receipt Date: 20251008
  Transmission Date: 20260118
  Serious: No
  Sender: ELI LILLY AND COMPANY
  Company Number: US-ELI_LILLY_AND_COMPANY-US202510006070

PATIENT

DRUGS (2)
  1. OLUMIANT [Suspect]
     Active Substance: BARICITINIB
     Indication: Vitiligo
     Dosage: UNK, UNKNOWN
     Route: 065
  2. LITFULO [Suspect]
     Active Substance: RITLECITINIB TOSYLATE
     Indication: Vitiligo
     Dosage: 50 MG, DAILY
     Route: 065

REACTIONS (2)
  - Blood bilirubin increased [Unknown]
  - Off label use [Unknown]
